FAERS Safety Report 20032952 (Version 1)
Quarter: 2021Q4

REPORT INFORMATION
  Report Type: Spontaneous
  Country: US (occurrence: US)
  Receive Date: 20211104
  Receipt Date: 20211104
  Transmission Date: 20220303
  Serious: Yes (Death, Life-Threatening, Other)
  Sender: FDA-Public Use
  Company Number: US-AMGEN-USASP2021169476

PATIENT

DRUGS (1)
  1. EPOGEN [Suspect]
     Active Substance: ERYTHROPOIETIN
     Indication: Anaemia
     Route: 065

REACTIONS (25)
  - Sepsis [Fatal]
  - Soft tissue infection [Fatal]
  - Neutropenia [Unknown]
  - Febrile neutropenia [Unknown]
  - Thrombocytopenia [Unknown]
  - Pneumonia [Unknown]
  - Atrial fibrillation [Unknown]
  - Acute coronary syndrome [Unknown]
  - Blood creatinine increased [Unknown]
  - Anaemia [Unknown]
  - Fatigue [Unknown]
  - Blood bilirubin increased [Unknown]
  - Diarrhoea [Unknown]
  - Rash maculo-papular [Unknown]
  - Dyspnoea [Unknown]
  - Decreased appetite [Unknown]
  - Dehydration [Unknown]
  - Ataxia [Unknown]
  - Cardiac failure [Unknown]
  - Neoplasm [Unknown]
  - Vomiting [Unknown]
  - Pruritus [Unknown]
  - Dizziness [Unknown]
  - Therapy non-responder [Unknown]
  - Drug resistance [Unknown]
